FAERS Safety Report 9998597 (Version 3)
Quarter: 2014Q4

REPORT INFORMATION
  Report Type: Report from Study
  Country: US (occurrence: US)
  Receive Date: 20140312
  Receipt Date: 20141020
  Transmission Date: 20150529
  Serious: Yes (Hospitalization)
  Sender: FDA-Public Use
  Company Number: US-BIOGENIDEC-2014BI019013

PATIENT
  Age: 44 Year
  Sex: Female

DRUGS (1)
  1. TECFIDERA [Suspect]
     Active Substance: DIMETHYL FUMARATE
     Indication: MULTIPLE SCLEROSIS
     Route: 048
     Dates: start: 20130823

REACTIONS (32)
  - Weight decreased [Not Recovered/Not Resolved]
  - Skin swelling [Unknown]
  - Optic neuritis [Unknown]
  - Visual impairment [Not Recovered/Not Resolved]
  - Eye disorder [Not Recovered/Not Resolved]
  - Dyspnoea [Not Recovered/Not Resolved]
  - Fatigue [Unknown]
  - Serotonin syndrome [Unknown]
  - Staphylococcal infection [Recovered/Resolved]
  - Adverse event [Not Recovered/Not Resolved]
  - General physical health deterioration [Not Recovered/Not Resolved]
  - Anger [Not Recovered/Not Resolved]
  - Coma [Recovered/Resolved]
  - Flushing [Unknown]
  - Dry skin [Unknown]
  - Scar [Unknown]
  - Dry mouth [Not Recovered/Not Resolved]
  - Osteomyelitis [Unknown]
  - Eating disorder [Not Recovered/Not Resolved]
  - Nervous system disorder [Not Recovered/Not Resolved]
  - Attention deficit/hyperactivity disorder [Unknown]
  - Fall [Recovered/Resolved]
  - Sepsis [Unknown]
  - Infection [Unknown]
  - Pruritus [Unknown]
  - Multiple sclerosis relapse [Not Recovered/Not Resolved]
  - Memory impairment [Not Recovered/Not Resolved]
  - Drug ineffective [Not Recovered/Not Resolved]
  - Hyperhidrosis [Not Recovered/Not Resolved]
  - Hot flush [Unknown]
  - Feeling hot [Not Recovered/Not Resolved]
  - Presyncope [Unknown]

NARRATIVE: CASE EVENT DATE: 20130823
